FAERS Safety Report 14093227 (Version 1)
Quarter: 2017Q4

REPORT INFORMATION
  Report Type: Spontaneous
  Country: US (occurrence: US)
  Receive Date: 20171016
  Receipt Date: 20171016
  Transmission Date: 20180321
  Serious: No
  Sender: FDA-Public Use
  Company Number: US-BAYER-2017-184870

PATIENT
  Age: 46 Year
  Sex: Female

DRUGS (1)
  1. FINACEA [Suspect]
     Active Substance: AZELAIC ACID
     Dosage: UNK
     Route: 061
     Dates: start: 20170714

REACTIONS (2)
  - Drug dose omission [None]
  - Product container issue [None]

NARRATIVE: CASE EVENT DATE: 2017
